FAERS Safety Report 13831796 (Version 1)
Quarter: 2017Q3

REPORT INFORMATION
  Report Type: Spontaneous
  Country: US (occurrence: US)
  Receive Date: 20170803
  Receipt Date: 20170803
  Transmission Date: 20171127
  Serious: No
  Sender: FDA-Public Use
  Company Number: US-ROCHE-677910

PATIENT
  Age: 63 Year
  Sex: Female
  Weight: 86.2 kg

DRUGS (6)
  1. BONIVA [Suspect]
     Active Substance: IBANDRONATE SODIUM
     Indication: OSTEOPENIA
     Route: 048
  2. TRICOR [Concomitant]
     Active Substance: FENOFIBRATE
     Route: 065
  3. ATENOLOL. [Concomitant]
     Active Substance: ATENOLOL
     Route: 065
  4. LIPITOR [Concomitant]
     Active Substance: ATORVASTATIN CALCIUM
     Route: 065
  5. HYZAAR [Concomitant]
     Active Substance: HYDROCHLOROTHIAZIDE\LOSARTAN POTASSIUM
     Route: 065
  6. PREDNISONE. [Concomitant]
     Active Substance: PREDNISONE
     Route: 065

REACTIONS (1)
  - Chills [Recovered/Resolved]

NARRATIVE: CASE EVENT DATE: 20100102
